FAERS Safety Report 22119270 (Version 1)
Quarter: 2023Q1

REPORT INFORMATION
  Report Type: Spontaneous
  Country: US (occurrence: US)
  Receive Date: 20230321
  Receipt Date: 20230321
  Transmission Date: 20230418
  Serious: Yes (Death, Hospitalization, Other)
  Sender: FDA-Public Use
  Company Number: US-MYLANLABS-2023M1028606

PATIENT
  Age: 37 Year
  Sex: Male

DRUGS (13)
  1. OCTREOTIDE [Suspect]
     Active Substance: OCTREOTIDE
     Indication: Pancreatic neuroendocrine tumour metastatic
     Dosage: UNK
     Route: 065
  2. EVEROLIMUS [Suspect]
     Active Substance: EVEROLIMUS
     Indication: Pancreatic neuroendocrine tumour metastatic
     Dosage: UNK
     Route: 065
  3. SUNITINIB [Suspect]
     Active Substance: SUNITINIB
     Indication: Pancreatic neuroendocrine tumour metastatic
     Dosage: UNK
     Route: 065
  4. ETOPOSIDE [Suspect]
     Active Substance: ETOPOSIDE
     Indication: Pancreatic neuroendocrine tumour metastatic
     Dosage: UNK
     Route: 065
  5. TEMOZOLOMIDE [Suspect]
     Active Substance: TEMOZOLOMIDE
     Indication: Pancreatic neuroendocrine tumour metastatic
     Dosage: UNK
     Route: 065
  6. CISPLATIN [Suspect]
     Active Substance: CISPLATIN
     Indication: Pancreatic neuroendocrine tumour metastatic
     Dosage: UNK
     Route: 065
  7. LEUCOVORIN [Suspect]
     Active Substance: LEUCOVORIN
     Indication: Insulinoma
     Dosage: UNK (FOLFIRI REGIMEN)
     Route: 065
  8. FLUOROURACIL [Suspect]
     Active Substance: FLUOROURACIL
     Indication: Insulinoma
     Dosage: UNK (FOLFIRI REGIMEN)
     Route: 065
  9. CAPECITABINE [Suspect]
     Active Substance: CAPECITABINE
     Indication: Pancreatic neuroendocrine tumour metastatic
     Dosage: UNK
     Route: 065
  10. IRINOTECAN [Suspect]
     Active Substance: IRINOTECAN
     Indication: Insulinoma
     Dosage: UNK (FOLFIRI REGIMEN)
     Route: 065
  11. PREDNISONE [Concomitant]
     Active Substance: PREDNISONE
     Indication: Insulinoma
     Dosage: 60 MILLIGRAM, QD
     Route: 048
  12. PREDNISONE [Concomitant]
     Active Substance: PREDNISONE
     Indication: Insulinoma
     Dosage: 200 MILLIGRAM, QD
     Route: 065
  13. LANREOTIDE [Concomitant]
     Active Substance: LANREOTIDE
     Indication: Insulinoma
     Dosage: UNK
     Route: 065

REACTIONS (4)
  - Insulinoma [Fatal]
  - Tumour lysis syndrome [Recovered/Resolved]
  - Drug ineffective [Unknown]
  - Disease progression [Unknown]
